FAERS Safety Report 4586005-9 (Version None)
Quarter: 2005Q1

REPORT INFORMATION
  Report Type: 
  Country: None (occurrence: None)
  Receive Date: 20050125
  Receipt Date: 20040820
  Transmission Date: 20050727
  Serious: No
  Sender: FDA-Public Use
  Company Number: USA040669409

PATIENT
  Age: 81 Year
  Sex: Female
  Weight: 41 kg

DRUGS (5)
  1. FORTEO [Suspect]
     Indication: OSTEOPOROSIS
     Dosage: 20 UG/1 DAY
     Dates: start: 20040604
  2. VITAMIN B12 FOR INJECTION (CYANOCOBALAMIN) [Concomitant]
  3. DHEA [Concomitant]
  4. LEVOTHYROXINE [Concomitant]
  5. MULTI-VITAMIN [Concomitant]

REACTIONS (8)
  - ARTHRALGIA [None]
  - BRONCHITIS [None]
  - DIARRHOEA [None]
  - INJECTION SITE HAEMORRHAGE [None]
  - NASOPHARYNGITIS [None]
  - NAUSEA [None]
  - PAIN [None]
  - TREMOR [None]
